FAERS Safety Report 6289557-6 (Version None)
Quarter: 2009Q3

REPORT INFORMATION
  Report Type: 
  Country: None (occurrence: None)
  Receive Date: 20090728
  Receipt Date: 20090728
  Transmission Date: 20100115
  Serious: Yes (Hospitalization)
  Sender: FDA-Public Use
  Company Number: None

PATIENT
  Age: 53 Year
  Sex: Female

DRUGS (3)
  1. LISINOPRIL [Suspect]
     Indication: HYPERTENSION
     Dosage: LISINOPRIL 20MG DAILY PO
     Route: 048
     Dates: start: 20090604, end: 20090618
  2. LASIX [Concomitant]
  3. HYDROCHLOROTHIAZIDE [Concomitant]

REACTIONS (2)
  - ANGIOEDEMA [None]
  - RESPIRATORY FAILURE [None]
